FAERS Safety Report 7750335-X (Version None)
Quarter: 2011Q3

REPORT INFORMATION
  Report Type: 
  Country: None (occurrence: None)
  Receive Date: 20110914
  Receipt Date: 20110908
  Transmission Date: 20111222
  Serious: Yes (Other)
  Sender: FDA-Public Use
  Company Number: GR-PFIZER INC-2011211812

PATIENT
  Age: 40 Year
  Sex: Male

DRUGS (1)
  1. ECALTA [Suspect]
     Indication: CULTURE WOUND
     Dosage: 1 DF, 1X/DAY
     Route: 042
     Dates: start: 20110407, end: 20110407

REACTIONS (4)
  - DISCOMFORT [None]
  - RASH [None]
  - MUSCLE SPASMS [None]
  - ANAPHYLACTIC REACTION [None]
